FAERS Safety Report 5392058-0 (Version None)
Quarter: 2007Q3

REPORT INFORMATION
  Report Type: 
  Country: None (occurrence: None)
  Receive Date: 20070720
  Receipt Date: 20070711
  Transmission Date: 20080115
  Serious: Yes (Hospitalization, Other)
  Sender: FDA-Public Use
  Company Number: FR-BRISTOL-MYERS SQUIBB COMPANY-13822416

PATIENT
  Age: 70 Year
  Sex: Female

DRUGS (12)
  1. HOLOXAN [Suspect]
     Indication: EWING'S SARCOMA
     Route: 042
     Dates: start: 20070524, end: 20070525
  2. VINCRISTINE [Suspect]
     Indication: EWING'S SARCOMA
     Route: 042
     Dates: start: 20070524, end: 20070524
  3. ADRIAMYCIN PFS [Suspect]
     Indication: EWING'S SARCOMA
     Route: 042
     Dates: start: 20070525, end: 20070525
  4. ZOFRAN [Concomitant]
     Indication: PREMEDICATION
     Dates: start: 20070525, end: 20070525
  5. SOLU-MEDROL [Concomitant]
     Indication: PREMEDICATION
     Dates: start: 20070525, end: 20070525
  6. CARDIOXANE [Concomitant]
     Indication: PREMEDICATION
     Route: 042
     Dates: start: 20070525, end: 20070525
  7. LEVOTHYROXINE SODIUM [Concomitant]
  8. PREGABALIN [Concomitant]
  9. ACTISKENAN [Concomitant]
  10. RIVOTRIL [Concomitant]
  11. PERISTALTINE [Concomitant]
  12. FORLAX [Concomitant]

REACTIONS (2)
  - ENCEPHALOPATHY [None]
  - HYPONATRAEMIA [None]
